FAERS Safety Report 25598892 (Version 2)
Quarter: 2025Q3

REPORT INFORMATION
  Report Type: Spontaneous
  Country: US (occurrence: US)
  Receive Date: 20250724
  Receipt Date: 20250728
  Transmission Date: 20251021
  Serious: No
  Sender: SANOFI AVENTIS
  Company Number: US-SA-2025SA211168

PATIENT
  Age: 75 Year
  Sex: Female
  Weight: 55.91 kg

DRUGS (1)
  1. DUPIXENT [Suspect]
     Active Substance: DUPILUMAB
     Indication: Dermatitis atopic
     Route: 058
     Dates: start: 20250716, end: 20250716

REACTIONS (8)
  - Fatigue [Recovered/Resolved]
  - Asthenia [Recovered/Resolved]
  - Paraesthesia [Recovered/Resolved]
  - Hypoaesthesia [Recovered/Resolved]
  - Sleep disorder due to a general medical condition [Recovered/Resolved]
  - Injection site swelling [Recovered/Resolved]
  - Injection site reaction [Recovered/Resolved]
  - Incorrect dose administered [Unknown]

NARRATIVE: CASE EVENT DATE: 20250616
